FAERS Safety Report 4745909-4 (Version None)
Quarter: 2005Q3

REPORT INFORMATION
  Report Type: 
  Country: None (occurrence: None)
  Receive Date: 20050816
  Receipt Date: 20050801
  Transmission Date: 20060218
  Serious: Yes (Other)
  Sender: FDA-Public Use
  Company Number: 2005GB01488

PATIENT
  Age: 41 Year
  Sex: Female
  Weight: 52 kg

DRUGS (1)
  1. PROPOFOL [Suspect]
     Route: 061

REACTIONS (3)
  - ACCIDENTAL EXPOSURE [None]
  - BLISTER [None]
  - ERYTHEMA [None]
